FAERS Safety Report 18120305 (Version 7)
Quarter: 2024Q1

REPORT INFORMATION
  Report Type: Spontaneous
  Country: DE (occurrence: DE)
  Receive Date: 20200806
  Receipt Date: 20240125
  Transmission Date: 20240410
  Serious: Yes (Hospitalization)
  Sender: FDA-Public Use
  Company Number: NVSC2020DE216567

PATIENT
  Age: 47 Year
  Sex: Female

DRUGS (15)
  1. AMLODIPINE [Suspect]
     Active Substance: AMLODIPINE BESYLATE
     Indication: Product used for unknown indication
     Dosage: 5 MG,QD
     Route: 065
     Dates: start: 20191117
  2. CARBIMAZOLE [Concomitant]
     Active Substance: CARBIMAZOLE
     Indication: Product used for unknown indication
     Dosage: 2.5MG
     Route: 065
  3. DALFAMPRIDINE [Concomitant]
     Active Substance: DALFAMPRIDINE
     Indication: Product used for unknown indication
     Dosage: 10 MG (10 MG, 0.5 DAY (1-0-1)
     Route: 065
  4. CHOLECALCIFEROL [Concomitant]
     Active Substance: CHOLECALCIFEROL
     Indication: Product used for unknown indication
     Dosage: 20000 IU, Q2W
     Route: 065
  5. CHOLECALCIFEROL [Concomitant]
     Active Substance: CHOLECALCIFEROL
     Dosage: 20000 UNK
     Route: 065
  6. CHOLECALCIFEROL [Concomitant]
     Active Substance: CHOLECALCIFEROL
     Dosage: 20000 UNK
     Route: 065
  7. NABIXIMOLS [Concomitant]
     Active Substance: NABIXIMOLS
     Indication: Product used for unknown indication
     Dosage: UNK
     Route: 065
  8. NABIXIMOLS [Concomitant]
     Active Substance: NABIXIMOLS
     Dosage: UNK
     Route: 065
  9. FOLIC ACID [Concomitant]
     Active Substance: FOLIC ACID
     Indication: Product used for unknown indication
     Dosage: 5MG
     Route: 065
  10. TIZANIDINE [Concomitant]
     Active Substance: TIZANIDINE
     Indication: Product used for unknown indication
     Dosage: 2 MG, BID (0.5-0-2)
     Route: 065
  11. TIZANIDINE [Concomitant]
     Active Substance: TIZANIDINE
     Dosage: 2MG (01-JAN-0001 00:00)
     Route: 065
  12. RAMIPRIL [Concomitant]
     Active Substance: RAMIPRIL
     Indication: Product used for unknown indication
     Dosage: 10MG
     Route: 065
  13. TOLPERISONE [Concomitant]
     Active Substance: TOLPERISONE
     Indication: Product used for unknown indication
     Dosage: 10MG
     Route: 065
  14. MONTELUKAST SODIUM [Concomitant]
     Active Substance: MONTELUKAST SODIUM
     Indication: Product used for unknown indication
     Dosage: 10MG
     Route: 065
  15. MONTELUKAST SODIUM [Concomitant]
     Active Substance: MONTELUKAST SODIUM
     Dosage: 10.000MG
     Route: 065

REACTIONS (13)
  - Circulatory collapse [Recovered/Resolved]
  - Tachycardia [Recovered/Resolved]
  - Syncope [Recovered/Resolved]
  - Blood pressure fluctuation [Recovered/Resolved]
  - Erythema [Recovered/Resolved]
  - Gait disturbance [Not Recovered/Not Resolved]
  - Swelling [Recovered/Resolved]
  - Spinal pain [Recovered/Resolved]
  - COVID-19 [Recovered/Resolved]
  - Fatigue [Recovered/Resolved]
  - Headache [Recovered/Resolved]
  - B-lymphocyte count decreased [Not Recovered/Not Resolved]
  - Colitis microscopic [Recovering/Resolving]

NARRATIVE: CASE EVENT DATE: 20190510
